FAERS Safety Report 4831080-7 (Version None)
Quarter: 2005Q4

REPORT INFORMATION
  Report Type: 
  Country: None (occurrence: None)
  Receive Date: 20051114
  Receipt Date: 20051103
  Transmission Date: 20060501
  Serious: Yes (Death)
  Sender: FDA-Public Use
  Company Number: 2005-11-0292

PATIENT
  Age: 61 Year
  Sex: Male

DRUGS (7)
  1. SALBUTAMOL SULPHATE  ^PROVENTIL HFA^ ORAL AEROSOL [Suspect]
     Dosage: 2 PUFFS QID ORAL AER INH
     Route: 055
  2. SPIRIVA [Suspect]
     Dosage: 18 MCG INHALATION
     Route: 055
  3. CALCICHEW D3 (CALCIUM CARBONATE/CHOLECALCIFEROL) [Suspect]
     Dosage: 2 DAILY
  4. SERETIDE (SALMETEROL XINAFOATE/FLUTICASONE PROPIONATE) [Suspect]
     Dosage: 2 PUFFS AM/PM
  5. ASPIRIN [Suspect]
     Dosage: 75 MG QD
  6. OMEPRAZOLE [Suspect]
     Dosage: 2 CAPS QD
  7. FLOMAX [Suspect]
     Dosage: 400 MCG QD

REACTIONS (2)
  - ASBESTOSIS [None]
  - CHRONIC OBSTRUCTIVE PULMONARY DISEASE [None]
